FAERS Safety Report 18590087 (Version 1)
Quarter: 2020Q4

REPORT INFORMATION
  Report Type: Spontaneous
  Country: US (occurrence: US)
  Receive Date: 20201208
  Receipt Date: 20201208
  Transmission Date: 20210114
  Serious: Yes (Other)
  Sender: FDA-Public Use
  Company Number: None

PATIENT
  Age: 64 Year
  Sex: Female
  Weight: 71.55 kg

DRUGS (12)
  1. FLAX SEED OIL CAPSULES [Concomitant]
  2. TUMERIC [Concomitant]
     Active Substance: HERBALS\TURMERIC
  3. QVAR REDIHALER [Suspect]
     Active Substance: BECLOMETHASONE DIPROPIONATE
     Indication: ASTHMA
     Dosage: ?          QUANTITY:2 PUFF(S);?
     Route: 055
     Dates: start: 20101203, end: 20200908
  4. SYMBICORT [Concomitant]
     Active Substance: BUDESONIDE\FORMOTEROL FUMARATE DIHYDRATE
  5. XOPENEX [Concomitant]
     Active Substance: LEVALBUTEROL HYDROCHLORIDE
  6. CLARATIN [Concomitant]
  7. OSTEO-BIFLEX [Concomitant]
  8. SINGULAIR [Concomitant]
     Active Substance: MONTELUKAST SODIUM
  9. QVAR [Concomitant]
     Active Substance: BECLOMETHASONE DIPROPIONATE
  10. BENEFIBER [Concomitant]
     Active Substance: STARCH, WHEAT
  11. VITAMIN C [Concomitant]
     Active Substance: ASCORBIC ACID
  12. BOSWELLIA [Concomitant]
     Active Substance: DIETARY SUPPLEMENT\HERBALS

REACTIONS (2)
  - Device malfunction [None]
  - Drug ineffective [None]

NARRATIVE: CASE EVENT DATE: 20200519
